FAERS Safety Report 4462599-9 (Version None)
Quarter: 2004Q3

REPORT INFORMATION
  Report Type: 
  Country: None (occurrence: None)
  Receive Date: 20040928
  Receipt Date: 20040910
  Transmission Date: 20050211
  Serious: Yes (Hospitalization, Other)
  Sender: FDA-Public Use
  Company Number: 2004233491BR

PATIENT
  Age: 26 Year
  Sex: Female
  Weight: 100 kg

DRUGS (2)
  1. DEPO-PROVERA [Suspect]
     Indication: CONTRACEPTION
     Dosage: 150 MG/3 MONTHS, LAST INJECTION, INTRAMUSCULAR
     Route: 030
     Dates: start: 20030201, end: 20030201
  2. DEPO-PROVERA [Suspect]
     Indication: CONTRACEPTION
     Dosage: 150 MG/3 MONTHS, LAST INJECTION, INTRAMUSCULAR
     Route: 030
     Dates: start: 20040201, end: 20040201

REACTIONS (5)
  - ABDOMINAL PAIN [None]
  - AMENORRHOEA [None]
  - BLOOD PRESSURE INCREASED [None]
  - MENSTRUATION IRREGULAR [None]
  - WEIGHT INCREASED [None]
